FAERS Safety Report 8190052-8 (Version None)
Quarter: 2012Q1

REPORT INFORMATION
  Report Type: 
  Country: None (occurrence: None)
  Receive Date: 20120307
  Receipt Date: 20120224
  Transmission Date: 20120608
  Serious: Yes (Death)
  Sender: FDA-Public Use
  Company Number: US-SANOFI-AVENTIS-2012SA006568

PATIENT
  Age: 71 Year
  Sex: Female

DRUGS (12)
  1. DILTIAZEM HYDROCHLORIDE [Suspect]
     Route: 048
  2. DILTIAZEM HYDROCHLORIDE [Suspect]
     Route: 048
  3. ZOLPIDEM TARTRATE [Suspect]
     Route: 048
  4. METOPROLOL SUCCINATE [Suspect]
     Route: 048
  5. METOPROLOL SUCCINATE [Suspect]
     Route: 048
  6. ZOLPIDEM TARTRATE [Suspect]
     Route: 048
  7. DILTIAZEM HYDROCHLORIDE [Suspect]
     Route: 048
  8. ZOLPIDEM TARTRATE [Suspect]
     Route: 048
  9. METOPROLOL SUCCINATE [Suspect]
     Route: 048
  10. DILTIAZEM HYDROCHLORIDE [Suspect]
     Route: 048
  11. ZOLPIDEM TARTRATE [Suspect]
     Route: 048
  12. METOPROLOL SUCCINATE [Suspect]
     Route: 048

REACTIONS (2)
  - COMPLETED SUICIDE [None]
  - MULTIPLE DRUG OVERDOSE [None]
